FAERS Safety Report 10179967 (Version 2)
Quarter: 2014Q2

REPORT INFORMATION
  Report Type: Spontaneous
  Country: US (occurrence: US)
  Receive Date: 20140519
  Receipt Date: 20140519
  Transmission Date: 20141212
  Serious: Yes (Other)
  Sender: FDA-Public Use
  Company Number: US-BRISTOL-MYERS SQUIBB COMPANY-19181114

PATIENT
  Age: 47 Year
  Sex: Male
  Weight: 68.03 kg

DRUGS (1)
  1. BARACLUDE [Suspect]
     Dosage: LAST ADM DATE:01AUG13.
     Route: 048
     Dates: start: 20110211

REACTIONS (1)
  - Drug ineffective [Unknown]
